FAERS Safety Report 5808069-4 (Version None)
Quarter: 2008Q3

REPORT INFORMATION
  Report Type: 
  Country: None (occurrence: None)
  Receive Date: 20080711
  Receipt Date: 20080630
  Transmission Date: 20090109
  Serious: Yes (Life-Threatening, Hospitalization, Other)
  Sender: FDA-Public Use
  Company Number: AR-PFIZER INC-2008054923

PATIENT
  Age: 63 Year
  Sex: Female

DRUGS (1)
  1. METHYLPREDNISOLONE [Suspect]
     Indication: ASTHMA
     Route: 048

REACTIONS (4)
  - ARTHRITIS BACTERIAL [None]
  - ASTHMA [None]
  - RESPIRATORY FAILURE [None]
  - WRONG DRUG ADMINISTERED [None]
